FAERS Safety Report 23159823 (Version 1)
Quarter: 2023Q4

REPORT INFORMATION
  Report Type: Other
  Country: AU (occurrence: AU)
  Receive Date: 20231108
  Receipt Date: 20231108
  Transmission Date: 20240109
  Serious: Yes (Death)
  Sender: FDA-Public Use
  Company Number: AU-002147023-NVSC2023AU236679

PATIENT

DRUGS (18)
  1. RUXOLITINIB [Suspect]
     Active Substance: RUXOLITINIB
     Indication: Thrombocytosis
     Dosage: UNK
     Route: 065
     Dates: start: 202002, end: 20210317
  2. RUXOLITINIB [Suspect]
     Active Substance: RUXOLITINIB
     Dosage: 20 MG, BID (INTERVAL: 1 DAY)
     Route: 048
     Dates: start: 20210331, end: 202109
  3. FEDRATINIB [Suspect]
     Active Substance: FEDRATINIB
     Indication: Myelofibrosis
     Dosage: 400 MG, QD (INTERVAL: 1 DAY)
     Route: 048
     Dates: start: 20211001, end: 20211014
  4. FEDRATINIB [Suspect]
     Active Substance: FEDRATINIB
     Indication: Thrombocytosis
  5. ALLOPURINOL [Concomitant]
     Active Substance: ALLOPURINOL
     Indication: Gout
     Dosage: 200 MG (INTERVAL: 1 DAY)
     Route: 048
     Dates: start: 20220714
  6. CALCIUM CARBONATE [Concomitant]
     Active Substance: CALCIUM CARBONATE
     Indication: Product used for unknown indication
     Dosage: 1.5 G (INTERVAL: 0 DAY)
     Route: 048
     Dates: start: 20211024
  7. CEPHALEXIN [Concomitant]
     Active Substance: CEPHALEXIN
     Indication: Product used for unknown indication
     Dosage: UNK
     Route: 065
  8. ENOXAPARIN SODIUM [Concomitant]
     Active Substance: ENOXAPARIN SODIUM
     Indication: Pulmonary embolism
     Dosage: 80 MG, QD (INTERVAL: 1 DAY)
     Route: 058
     Dates: start: 20210921
  9. FLUOROURACIL [Concomitant]
     Active Substance: FLUOROURACIL
     Indication: Actinic keratosis
     Dosage: UNK (INTERVAL: 1 DAY)
     Route: 061
     Dates: start: 20220914
  10. HYDROXYUREA [Concomitant]
     Active Substance: HYDROXYUREA
     Indication: Leukocytosis
     Dosage: 1 G (; INTERVAL: 0 DAY)
     Route: 048
     Dates: start: 20210921
  11. HYDROXYUREA [Concomitant]
     Active Substance: HYDROXYUREA
     Dosage: 1000 MG, QD (INTERVAL: 1 DAY)
     Route: 048
     Dates: start: 20210921
  12. METOCLOPRAMIDE [Concomitant]
     Active Substance: METOCLOPRAMIDE
     Indication: Nausea
     Dosage: 10 MG
     Route: 048
     Dates: start: 20210331
  13. MOVICOL [Concomitant]
     Active Substance: POLYETHYLENE GLYCOL 3350\POTASSIUM CHLORIDE\SODIUM BICARBONATE\SODIUM CHLORIDE
     Indication: Product used for unknown indication
     Dosage: UNK
     Route: 065
  14. PANTOPRAZOLE [Concomitant]
     Active Substance: PANTOPRAZOLE
     Indication: Prophylaxis
     Dosage: 20 MG, QD (INTERVAL: 1 DAY)
     Route: 048
     Dates: start: 20210906
  15. PRAMIPEXOLE [Concomitant]
     Active Substance: PRAMIPEXOLE
     Indication: Product used for unknown indication
     Dosage: UNK
     Route: 065
  16. PREDNISOLONE [Concomitant]
     Active Substance: PREDNISOLONE
     Indication: Sciatica
     Dosage: 5 MG, QD (INTERVAL: 1 DAY)
     Route: 048
     Dates: start: 20211102
  17. PIPERACILLIN SODIUM\TAZOBACTAM SODIUM [Concomitant]
     Active Substance: PIPERACILLIN SODIUM\TAZOBACTAM SODIUM
     Indication: Pneumonia
     Dosage: UNK
     Route: 042
     Dates: start: 20210921
  18. THIAMINE [THIAMINE HYDROCHLORIDE] [Concomitant]
     Indication: Prophylaxis
     Dosage: 100 MG (INTERVAL: 1 DAY)
     Route: 048
     Dates: start: 20211001

REACTIONS (1)
  - Subdural haematoma [Fatal]

NARRATIVE: CASE EVENT DATE: 20230404
